FAERS Safety Report 14321564 (Version 7)
Quarter: 2019Q2

REPORT INFORMATION
  Report Type: Spontaneous
  Country: FR (occurrence: FR)
  Receive Date: 20171223
  Receipt Date: 20190610
  Transmission Date: 20190711
  Serious: Yes (Hospitalization, Other)
  Sender: FDA-Public Use
  Company Number: FR-MYLANLABS-2017M1080816

PATIENT
  Age: 58 Year
  Sex: Male

DRUGS (12)
  1. BUPRENORPHINE. [Suspect]
     Active Substance: BUPRENORPHINE
     Indication: ALCOHOL DETOXIFICATION
     Dosage: 16 MG, QD
     Route: 065
  2. BUPRENORPHINE. [Interacting]
     Active Substance: BUPRENORPHINE
     Dosage: 8 MG, TOTAL
     Route: 065
  3. BUPRENORPHINE. [Interacting]
     Active Substance: BUPRENORPHINE
     Dosage: 8 MILLIGRAM
  4. CANNABIS [Interacting]
     Active Substance: CANNABIS SATIVA SUBSP. INDICA TOP
     Indication: PRODUCT USED FOR UNKNOWN INDICATION
     Dosage: UNK
     Route: 055
  5. NALTREXONE [Interacting]
     Active Substance: NALTREXONE
     Dosage: 50 MILLIGRAM
     Route: 065
  6. DIAZEPAM. [Concomitant]
     Active Substance: DIAZEPAM
     Dosage: 10 MG, UNK
     Route: 065
  7. ESCITALOPRAM [Concomitant]
     Active Substance: ESCITALOPRAM OXALATE
     Indication: PRODUCT USED FOR UNKNOWN INDICATION
     Dosage: 10 MG, QD
     Route: 065
  8. DIAZEPAM. [Concomitant]
     Active Substance: DIAZEPAM
     Indication: PRODUCT USED FOR UNKNOWN INDICATION
     Dosage: 20 MG, QD
     Route: 065
  9. NALTREXONE [Interacting]
     Active Substance: NALTREXONE
     Indication: PRODUCT USED FOR UNKNOWN INDICATION
     Dosage: 50 MG, TOTAL
     Route: 065
  10. BUPRENORPHINE. [Interacting]
     Active Substance: BUPRENORPHINE
     Dosage: 16 MG, UNK
     Route: 065
  11. BUPRENORPHINE. [Interacting]
     Active Substance: BUPRENORPHINE
     Dosage: 8 MG, QD
     Route: 065
  12. ALCOHOL. [Interacting]
     Active Substance: ALCOHOL
     Indication: PRODUCT USED FOR UNKNOWN INDICATION
     Dosage: 20 STANDARD DRINKS PER DAY, QD
     Route: 048

REACTIONS (15)
  - Accidental exposure to product [Unknown]
  - Alcohol abuse [Recovered/Resolved]
  - Product administration error [Unknown]
  - Agitation [Recovered/Resolved]
  - Rhinorrhoea [Recovered/Resolved]
  - Blood pressure increased [Recovered/Resolved]
  - Drug withdrawal syndrome [Recovered/Resolved]
  - Drug abuse [Not Recovered/Not Resolved]
  - Wrong product administered [Recovered/Resolved]
  - Alcohol detoxification [Unknown]
  - Tachycardia [Recovered/Resolved]
  - Myalgia [Recovered/Resolved]
  - Mydriasis [Recovered/Resolved]
  - Drug interaction [Recovered/Resolved]
  - Confusional state [Recovered/Resolved]
